FAERS Safety Report 10590506 (Version 2)
Quarter: 2015Q4

REPORT INFORMATION
  Report Type: Report from Study
  Country: VN (occurrence: VN)
  Receive Date: 20141118
  Receipt Date: 20151228
  Transmission Date: 20160304
  Serious: Yes (Death)
  Sender: FDA-Public Use
  Company Number: VN-BAXTER-2014BAX067870

PATIENT
  Sex: Male

DRUGS (2)
  1. DIANEAL LOW CALCIUM PERITONEAL DIALYSIS SOLUTION WITH DEXTROSE [Suspect]
     Active Substance: CALCIUM CHLORIDE\DEXTROSE\MAGNESIUM CHLORIDE\SODIUM CHLORIDE\SODIUM LACTATE
     Indication: PERITONEAL DIALYSIS
     Dosage: 3 BAGS (2 LITERS EACH PER DAY)
     Route: 033
     Dates: start: 20120710, end: 20141015
  2. DIANEAL LOW CALCIUM PERITONEAL DIALYSIS SOLUTION WITH DEXTROSE [Suspect]
     Active Substance: CALCIUM CHLORIDE\DEXTROSE\MAGNESIUM CHLORIDE\SODIUM CHLORIDE\SODIUM LACTATE
     Indication: PERITONEAL DIALYSIS
     Dosage: 1 BAG (OF 2 LITERS PER DAY)
     Route: 033
     Dates: start: 20120710, end: 20141015

REACTIONS (1)
  - Cerebrovascular accident [Fatal]
